FAERS Safety Report 16908446 (Version 1)
Quarter: 2019Q4

REPORT INFORMATION
  Report Type: Spontaneous
  Country: ES (occurrence: ES)
  Receive Date: 20191011
  Receipt Date: 20191011
  Transmission Date: 20200122
  Serious: Yes (Congenital Anomaly)
  Sender: FDA-Public Use
  Company Number: ES-MYLANLABS-2019M1076138

PATIENT
  Sex: Female

DRUGS (4)
  1. EMTRICITABINE [Suspect]
     Active Substance: EMTRICITABINE
     Indication: HIV INFECTION
     Route: 064
  2. ZIDOVUDINE. [Concomitant]
     Active Substance: ZIDOVUDINE
     Indication: PROPHYLAXIS
     Route: 065
  3. ETRAVIRINE [Suspect]
     Active Substance: ETRAVIRINE
     Indication: HIV INFECTION
     Route: 064
  4. TENOFOVIR [Suspect]
     Active Substance: TENOFOVIR
     Indication: HIV INFECTION
     Route: 064

REACTIONS (4)
  - Foetal exposure during pregnancy [Recovered/Resolved]
  - Congenital genital malformation female [Unknown]
  - Enlarged clitoris [Unknown]
  - Adrenogenital syndrome [Unknown]
